FAERS Safety Report 9899352 (Version 1)
Quarter: 2014Q1

REPORT INFORMATION
  Report Type: Report from Study
  Country: AR (occurrence: AR)
  Receive Date: 20140214
  Receipt Date: 20140214
  Transmission Date: 20141002
  Serious: Yes (Hospitalization)
  Sender: FDA-Public Use
  Company Number: AR-MERCK-1402ARG004818

PATIENT
  Age: 70 Year
  Sex: Male
  Weight: 90 kg

DRUGS (5)
  1. BLINDED EZETIMIBE (+) SIMVASTATIN [Suspect]
     Indication: ACUTE CORONARY SYNDROME
     Dosage: UNK
     Route: 048
     Dates: start: 20070215
  2. BLINDED THERAPY [Suspect]
     Indication: ACUTE CORONARY SYNDROME
     Dosage: UNK
     Route: 048
     Dates: start: 20070215
  3. LOSARTAN POTASSIUM [Suspect]
     Dosage: DAILY DOSE: 100 MG
     Route: 048
     Dates: start: 20131023
  4. CARVEDILOL [Suspect]
     Dosage: DAILY DOSE: 25 MG
     Route: 048
     Dates: start: 20090617
  5. ASPIRIN [Concomitant]
     Dosage: DAILY DOSE: 100 MG
     Route: 048
     Dates: start: 20070212

REACTIONS (1)
  - Syncope [Recovered/Resolved]
